FAERS Safety Report 20600724 (Version 1)
Quarter: 2022Q1

REPORT INFORMATION
  Report Type: Spontaneous
  Country: ET (occurrence: ET)
  Receive Date: 20220316
  Receipt Date: 20220316
  Transmission Date: 20220423
  Serious: Yes (Other)
  Sender: FDA-Public Use
  Company Number: ET-HETERO-HET2022ET00646

PATIENT
  Age: 50 Year
  Sex: Male

DRUGS (3)
  1. DOLUTEGRAVIR [Suspect]
     Active Substance: DOLUTEGRAVIR
     Indication: HIV infection WHO clinical stage IV
     Dosage: 50 MG, QD
     Route: 065
     Dates: start: 20191029
  2. TENOFOVIR DISOPROXIL FUMARATE [Concomitant]
     Active Substance: TENOFOVIR DISOPROXIL FUMARATE
     Indication: HIV infection WHO clinical stage IV
     Dosage: 300 MG, QD
     Route: 065
     Dates: start: 20191029
  3. LAMIVUDINE [Concomitant]
     Active Substance: LAMIVUDINE
     Indication: HIV infection WHO clinical stage IV
     Dosage: 300 MG, QD
     Route: 065
     Dates: start: 20191029

REACTIONS (1)
  - Type 2 diabetes mellitus [Recovering/Resolving]

NARRATIVE: CASE EVENT DATE: 20200228
